FAERS Safety Report 5003664-7 (Version None)
Quarter: 2006Q2

REPORT INFORMATION
  Report Type: 
  Country: None (occurrence: None)
  Receive Date: 20060511
  Receipt Date: 20060502
  Transmission Date: 20061013
  Serious: Yes (Hospitalization)
  Sender: FDA-Public Use
  Company Number: 2006-05-0009

PATIENT
  Age: 12 Year
  Sex: Female
  Weight: 24 kg

DRUGS (8)
  1. CELESTENE (BETAMETHASONE) ORALS ^LIKE CELESTONE ORAL SOLUTION^ [Suspect]
     Indication: OTITIS MEDIA
     Dosage: ORAL
     Route: 048
     Dates: start: 20060312, end: 20060317
  2. COUMADIN [Suspect]
     Dosage: SEE IMAGE
     Route: 048
     Dates: start: 20060312, end: 20060317
  3. COUMADIN [Suspect]
     Dosage: SEE IMAGE
     Route: 048
     Dates: end: 20060317
  4. COUMADIN [Suspect]
     Dosage: SEE IMAGE
     Route: 048
     Dates: start: 20060321
  5. AUGMENTIN '200' [Suspect]
     Indication: OTITIS MEDIA
     Dosage: ORAL
     Route: 048
     Dates: start: 20060312, end: 20060317
  6. CORDARONE [Concomitant]
  7. URBANYL [Concomitant]
  8. VALPROIC ACID [Concomitant]

REACTIONS (4)
  - DRUG INTERACTION [None]
  - HAEMATOMA [None]
  - INTERNATIONAL NORMALISED RATIO INCREASED [None]
  - PROTHROMBIN LEVEL DECREASED [None]
